FAERS Safety Report 17805141 (Version 1)
Quarter: 2020Q2

REPORT INFORMATION
  Report Type: Spontaneous
  Country: SE (occurrence: SE)
  Receive Date: 20200519
  Receipt Date: 20200519
  Transmission Date: 20200714
  Serious: Yes (Hospitalization, Other)
  Sender: FDA-Public Use
  Company Number: NVSC2020SE133043

PATIENT
  Sex: Male

DRUGS (9)
  1. LOSARTAN. [Interacting]
     Active Substance: LOSARTAN
     Indication: PRODUCT USED FOR UNKNOWN INDICATION
     Dosage: UNK
     Route: 065
  2. DOPAMINE [Interacting]
     Active Substance: DOPAMINE HYDROCHLORIDE
     Indication: PARKINSONISM
     Dosage: UNK LOW DOSE
     Route: 065
     Dates: start: 2019
  3. TROMBYL [Interacting]
     Active Substance: ASPIRIN
     Indication: ANTICOAGULANT THERAPY
     Dosage: 75 MILLIGRAMS, QD
     Route: 065
     Dates: start: 201804
  4. SERTRONE [Interacting]
     Active Substance: SERTRALINE HYDROCHLORIDE
     Indication: FATIGUE
     Dosage: 25 MILLIGRAM, QD
     Route: 065
     Dates: start: 201804, end: 201807
  5. SIMVASTATIN. [Suspect]
     Active Substance: SIMVASTATIN
     Indication: BLOOD PRESSURE INCREASED
     Dosage: UNK
     Route: 065
  6. HUMALOG [Interacting]
     Active Substance: INSULIN LISPRO
     Indication: DIABETES MELLITUS
     Dosage: 2 DF, QD
     Route: 065
  7. ALLOPURINOL. [Interacting]
     Active Substance: ALLOPURINOL
     Indication: GOUT
     Dosage: UNK
     Route: 065
     Dates: start: 201804
  8. CLOPIDOGREL HYDROGEN SULFATE [Interacting]
     Active Substance: CLOPIDOGREL BISULFATE
     Indication: ANTICOAGULANT THERAPY
     Dosage: UNK
     Route: 065
     Dates: start: 201806
  9. ELIQUIS [Interacting]
     Active Substance: APIXABAN
     Indication: PRODUCT USED FOR UNKNOWN INDICATION
     Dosage: UNK
     Route: 065

REACTIONS (13)
  - Musculoskeletal stiffness [Not Recovered/Not Resolved]
  - Thrombosis [Recovered/Resolved with Sequelae]
  - Drug interaction [Unknown]
  - Gait disturbance [Not Recovered/Not Resolved]
  - Blood glucose increased [Recovered/Resolved]
  - Fall [Recovered/Resolved with Sequelae]
  - Diarrhoea [Recovered/Resolved]
  - Hiccups [Recovered/Resolved]
  - Dementia [Unknown]
  - Fatigue [Not Recovered/Not Resolved]
  - Peripheral coldness [Not Recovered/Not Resolved]
  - Anal haemorrhage [Recovered/Resolved]
  - Epistaxis [Recovered/Resolved]

NARRATIVE: CASE EVENT DATE: 201805
